FAERS Safety Report 22098611 (Version 1)
Quarter: 2023Q1

REPORT INFORMATION
  Report Type: Spontaneous
  Country: US (occurrence: None)
  Receive Date: 20230314
  Receipt Date: 20230314
  Transmission Date: 20230418
  Serious: Yes (Life-Threatening, Hospitalization, Disabling)
  Sender: FDA-Public Use
  Company Number: None

PATIENT
  Age: 55 Year
  Sex: Male
  Weight: 101.25 kg

DRUGS (15)
  1. TASIGNA [Suspect]
     Active Substance: NILOTINIB
     Indication: Chronic myeloid leukaemia
     Dosage: FREQUENCY : AT BEDTIME;?
     Route: 048
     Dates: start: 20180510
  2. DEVICE [Concomitant]
     Active Substance: DEVICE
  3. TASIGNA [Concomitant]
     Active Substance: NILOTINIB
  4. BRILINTA [Concomitant]
     Active Substance: TICAGRELOR
  5. Losaetan [Concomitant]
  6. DULOXETINE [Concomitant]
     Active Substance: DULOXETINE
  7. BETAMETHASONE [Concomitant]
     Active Substance: BETAMETHASONE
  8. CYMBALTA [Concomitant]
     Active Substance: DULOXETINE HYDROCHLORIDE
  9. CICLOPIROX [Concomitant]
     Active Substance: CICLOPIROX
  10. SINGULAIR [Concomitant]
     Active Substance: MONTELUKAST SODIUM
  11. ALLEGRA [Concomitant]
     Active Substance: FEXOFENADINE HYDROCHLORIDE
  12. FAMOTIDINE [Concomitant]
     Active Substance: FAMOTIDINE
  13. ASPIRIN [Concomitant]
     Active Substance: ASPIRIN
  14. MAGNESIUM [Concomitant]
     Active Substance: MAGNESIUM
  15. Men^s multi-vitamin [Concomitant]

REACTIONS (4)
  - Therapy cessation [None]
  - Angina pectoris [None]
  - Arteriosclerosis [None]
  - Coronary arterial stent insertion [None]

NARRATIVE: CASE EVENT DATE: 20221228
